FAERS Safety Report 5484803-0 (Version None)
Quarter: 2007Q4

REPORT INFORMATION
  Report Type: 
  Country: None (occurrence: None)
  Receive Date: 20071012
  Receipt Date: 20071001
  Transmission Date: 20080405
  Serious: Yes (Other)
  Sender: FDA-Public Use
  Company Number: GB-PFIZER INC-2007082220

PATIENT
  Sex: Male

DRUGS (1)
  1. XANAX [Suspect]
     Route: 048

REACTIONS (1)
  - OVERDOSE [None]
